FAERS Safety Report 15113394 (Version 1)
Quarter: 2018Q3

REPORT INFORMATION
  Report Type: Spontaneous
  Country: None (occurrence: IN)
  Receive Date: 20180706
  Receipt Date: 20180706
  Transmission Date: 20181010
  Serious: Yes (Death, Hospitalization, Other)
  Sender: FDA-Public Use
  Company Number: IN-CONCORDIA PHARMACEUTICALS INC.-E2B_00013233

PATIENT
  Age: 13 Year
  Sex: Male
  Weight: 25 kg

DRUGS (9)
  1. ATORVASTATIN [Concomitant]
     Active Substance: ATORVASTATIN
     Indication: NEPHROTIC SYNDROME
     Dosage: AT BEDTIME
  2. TACROLIMUS. [Concomitant]
     Active Substance: TACROLIMUS
     Indication: NEPHROTIC SYNDROME
  3. PREDNISOLONE. [Suspect]
     Active Substance: PREDNISOLONE
     Indication: FOCAL SEGMENTAL GLOMERULOSCLEROSIS
  4. VITAMIN D [Concomitant]
     Active Substance: CHOLECALCIFEROL
  5. TACROLIMUS. [Concomitant]
     Active Substance: TACROLIMUS
     Indication: FOCAL SEGMENTAL GLOMERULOSCLEROSIS
  6. PREDNISOLONE. [Suspect]
     Active Substance: PREDNISOLONE
     Indication: NEPHROTIC SYNDROME
  7. NIFEDIPINE RETARD [Concomitant]
     Indication: NEPHROTIC SYNDROME
     Dates: start: 201409
  8. LOSARTAN. [Concomitant]
     Active Substance: LOSARTAN
     Indication: NEPHROTIC SYNDROME
  9. CALCIUM [Concomitant]
     Active Substance: CALCIUM

REACTIONS (3)
  - Portal vein thrombosis [Not Recovered/Not Resolved]
  - Mesenteric vein thrombosis [Not Recovered/Not Resolved]
  - Hypercoagulation [Not Recovered/Not Resolved]

NARRATIVE: CASE EVENT DATE: 201607
